FAERS Safety Report 18652981 (Version 2)
Quarter: 2021Q1

REPORT INFORMATION
  Report Type: Spontaneous
  Country: IT (occurrence: IT)
  Receive Date: 20201223
  Receipt Date: 20210104
  Transmission Date: 20210419
  Serious: No
  Sender: FDA-Public Use
  Company Number: IT-INSMED, INC.-E2B_00000384

PATIENT
  Age: 2 Week
  Sex: Male

DRUGS (2)
  1. TEICOPLANIN [Concomitant]
     Active Substance: TEICOPLANIN
     Indication: INFECTIOUS PLEURAL EFFUSION
  2. AMIKACIN. [Suspect]
     Active Substance: AMIKACIN
     Indication: INFECTIOUS PLEURAL EFFUSION

REACTIONS (2)
  - Off label use [Unknown]
  - Product administered to patient of inappropriate age [Unknown]
